FAERS Safety Report 10422510 (Version 2)
Quarter: 2014Q3

REPORT INFORMATION
  Report Type: Report from Study
  Country: BR (occurrence: BR)
  Receive Date: 20140901
  Receipt Date: 20140908
  Transmission Date: 20150326
  Serious: Yes (Other)
  Sender: FDA-Public Use
  Company Number: PHHY2014BR109632

PATIENT
  Age: 61 Year
  Sex: Female
  Weight: 73 kg

DRUGS (1)
  1. FORASEQ [Suspect]
     Active Substance: BUDESONIDE\FORMOTEROL FUMARATE
     Indication: EMPHYSEMA
     Dosage: 1 DF, BID (1 CAPSULE IN THE MORNING AND 1 IN THE AFTERNOON)
     Route: 055
     Dates: end: 20140827

REACTIONS (6)
  - Crohn^s disease [Unknown]
  - Gastrointestinal pain [Unknown]
  - Incorrect dose administered [Unknown]
  - Hiatus hernia [Unknown]
  - Dyspnoea [Recovering/Resolving]
  - Drug ineffective [Unknown]

NARRATIVE: CASE EVENT DATE: 201402
